FAERS Safety Report 10156573 (Version 1)
Quarter: 2014Q2

REPORT INFORMATION
  Report Type: Spontaneous
  Country: US (occurrence: None)
  Receive Date: 20140505
  Receipt Date: 20140505
  Transmission Date: 20141212
  Serious: Yes (Life-Threatening)
  Sender: FDA-Public Use
  Company Number: 2329167

PATIENT
  Sex: 0

DRUGS (1)
  1. MORPHINE SULFATE [Suspect]

REACTIONS (1)
  - Cardiac arrest [None]
